FAERS Safety Report 9803764 (Version 1)
Quarter: 2014Q1

REPORT INFORMATION
  Report Type: Spontaneous
  Country: US (occurrence: US)
  Receive Date: 20140108
  Receipt Date: 20140108
  Transmission Date: 20141002
  Serious: No
  Sender: FDA-Public Use
  Company Number: US-GLAXOSMITHKLINE-A1035164A

PATIENT
  Sex: Female

DRUGS (2)
  1. LOVAZA [Suspect]
     Indication: HAIR DISORDER
     Dosage: 1CAP PER DAY
     Route: 048
     Dates: start: 201307, end: 201307
  2. NO CONCURRENT MEDICATION [Concomitant]

REACTIONS (2)
  - Vertigo [Recovered/Resolved]
  - Off label use [Unknown]
